FAERS Safety Report 6094277-7 (Version None)
Quarter: 2009Q1

REPORT INFORMATION
  Report Type: 
  Country: None (occurrence: None)
  Receive Date: 20090225
  Receipt Date: 20090225
  Transmission Date: 20090719
  Serious: Yes (Other)
  Sender: FDA-Public Use
  Company Number: None

PATIENT
  Age: 26 Year
  Sex: Female
  Weight: 81.6475 kg

DRUGS (1)
  1. LAMOTRIGINE [Suspect]
     Indication: SCHIZOAFFECTIVE DISORDER
     Dosage: 150 MG 2 Q DAY - PO
     Route: 048
     Dates: start: 20090129, end: 20090224

REACTIONS (8)
  - AGITATION [None]
  - ANGER [None]
  - APATHY [None]
  - FATIGUE [None]
  - IRRITABILITY [None]
  - MOOD ALTERED [None]
  - PRODUCT QUALITY ISSUE [None]
  - RESTLESSNESS [None]
